FAERS Safety Report 23550718 (Version 1)
Quarter: 2024Q1

REPORT INFORMATION
  Report Type: Spontaneous
  Country: JP (occurrence: JP)
  Receive Date: 20240221
  Receipt Date: 20240221
  Transmission Date: 20240410
  Serious: Yes (Hospitalization, Other)
  Sender: FDA-Public Use
  Company Number: JP-MPKK-JPN202400153_P_1

PATIENT
  Age: 89 Year
  Sex: Female

DRUGS (1)
  1. NORSPAN [Suspect]
     Active Substance: BUPRENORPHINE
     Indication: Pain in extremity
     Dosage: 20 MCG/H, WEEKLY
     Route: 062

REACTIONS (2)
  - Cholangitis [Unknown]
  - Off label use [Unknown]
